FAERS Safety Report 19683313 (Version 1)
Quarter: 2021Q3

REPORT INFORMATION
  Report Type: Spontaneous
  Country: HR (occurrence: HR)
  Receive Date: 20210810
  Receipt Date: 20210810
  Transmission Date: 20211014
  Serious: Yes (Other)
  Sender: FDA-Public Use
  Company Number: HR-SA-2021SA257067

PATIENT
  Sex: Female

DRUGS (3)
  1. NITRAZEPAM [Suspect]
     Active Substance: NITRAZEPAM
     Dosage: TOOK 10 CERSON TABLETS (NITRAZEPAM) 15 MG (150 MG).
     Route: 048
     Dates: start: 20210521, end: 20210521
  2. MIRTAZAPINE. [Suspect]
     Active Substance: MIRTAZAPINE
     Dosage: POPILA 3 TABLETE CALIXTA 15 MG (45 MG)
     Route: 048
     Dates: start: 20210521, end: 20210521
  3. FEXOFENADINE [Suspect]
     Active Substance: FEXOFENADINE HYDROCHLORIDE
     Dosage: TOOK 3 TABLETS TELFAST (FEXOFENADINE) 120 MG (360 MG)
     Route: 048
     Dates: start: 20210521, end: 20210521

REACTIONS (3)
  - Suicide attempt [Unknown]
  - Somnolence [Unknown]
  - Intentional overdose [Unknown]

NARRATIVE: CASE EVENT DATE: 20210521
